FAERS Safety Report 25815081 (Version 2)
Quarter: 2025Q3

REPORT INFORMATION
  Report Type: Report from Study
  Country: US (occurrence: US)
  Receive Date: 20250918
  Receipt Date: 20250922
  Transmission Date: 20251021
  Serious: Yes (Other)
  Sender: ACADIA PHARMACEUTICALS
  Company Number: US-ACADIA PHARMACEUTICALS INC.-ACA-2025-PIM-010301

PATIENT
  Sex: Male

DRUGS (1)
  1. NUPLAZID [Suspect]
     Active Substance: PIMAVANSERIN TARTRATE
     Indication: Parkinson^s disease psychosis
     Dosage: 34 MILLIGRAM, QD
     Route: 048

REACTIONS (7)
  - Psychotic disorder [Unknown]
  - Hallucination [Unknown]
  - Panic attack [Unknown]
  - Delusion [Unknown]
  - Paranoid personality disorder [Unknown]
  - Homicidal ideation [Unknown]
  - Aggression [Unknown]
